FAERS Safety Report 10692616 (Version 1)
Quarter: 2015Q1

REPORT INFORMATION
  Report Type: Report from Study
  Country: CO (occurrence: CO)
  Receive Date: 20150106
  Receipt Date: 20150106
  Transmission Date: 20150720
  Serious: Yes (Hospitalization, Disabling, Other)
  Sender: FDA-Public Use
  Company Number: CO-SA-2015SA000431

PATIENT
  Age: 78 Year
  Sex: Male

DRUGS (1)
  1. LANTUS [Suspect]
     Active Substance: INSULIN GLARGINE
     Indication: DIABETES MELLITUS
     Dosage: DOSE:30 UNIT(S)
     Route: 058
     Dates: start: 200012

REACTIONS (4)
  - Haemorrhagic stroke [Recovered/Resolved with Sequelae]
  - Ataxia [Unknown]
  - Hemiparesis [Unknown]
  - Dysarthria [Unknown]

NARRATIVE: CASE EVENT DATE: 201412
